FAERS Safety Report 19960461 (Version 4)
Quarter: 2022Q1

REPORT INFORMATION
  Report Type: Spontaneous
  Country: GB (occurrence: GB)
  Receive Date: 20211015
  Receipt Date: 20220118
  Transmission Date: 20220423
  Serious: Yes (Life-Threatening, Hospitalization, Disabling, Other)
  Sender: FDA-Public Use
  Company Number: GB-JNJFOC-20210764715

PATIENT
  Age: 27 Year
  Sex: Female
  Weight: 63.5 kg

DRUGS (50)
  1. OMEPRAZOLE [Suspect]
     Active Substance: OMEPRAZOLE
     Indication: Duodenal ulcer
     Dosage: 20 MG, QD
     Route: 065
     Dates: start: 20110525
  2. OMEPRAZOLE [Suspect]
     Active Substance: OMEPRAZOLE
     Indication: Dyspepsia
  3. AMITRIPTYLINE [Suspect]
     Active Substance: AMITRIPTYLINE
     Indication: Serotonin syndrome
     Dosage: UNK
     Route: 065
  4. AMITRIPTYLINE [Suspect]
     Active Substance: AMITRIPTYLINE
     Indication: Muscle spasms
     Dosage: 25 MILLIGRAM, QD
     Route: 065
     Dates: start: 20110810
  5. AMITRIPTYLINE [Suspect]
     Active Substance: AMITRIPTYLINE
     Indication: Neuralgia
     Dosage: UNK
     Route: 065
  6. CLONAZEPAM [Suspect]
     Active Substance: CLONAZEPAM
     Indication: Sedation
     Dosage: THERAPY END FLAG: DRUG NO LONGER ADMINISTERED
     Route: 048
     Dates: start: 20110224, end: 20110410
  7. CODEINE [Suspect]
     Active Substance: CODEINE
     Indication: Serotonin syndrome
     Dosage: 15-30 MG
     Route: 048
     Dates: start: 20110615, end: 20110723
  8. CODEINE [Suspect]
     Active Substance: CODEINE
     Indication: Analgesic therapy
     Dosage: UNK
     Route: 048
     Dates: start: 2002, end: 2002
  9. CODEINE [Suspect]
     Active Substance: CODEINE
     Dosage: UNK
     Route: 048
     Dates: start: 2008, end: 2008
  10. CODEINE [Suspect]
     Active Substance: CODEINE
     Dosage: UNK
     Route: 048
     Dates: start: 20110224, end: 20110410
  11. DIAZEPAM [Suspect]
     Active Substance: DIAZEPAM
     Indication: Serotonin syndrome
     Dosage: 5 MILLIGRAM, QID
     Route: 048
     Dates: start: 20110725
  12. DIAZEPAM [Suspect]
     Active Substance: DIAZEPAM
     Indication: Depression
     Dosage: 8 MG, QD
     Route: 065
     Dates: start: 20110725
  13. DIAZEPAM [Suspect]
     Active Substance: DIAZEPAM
     Indication: Muscle spasms
     Dosage: 5 MG QDS AND NOW ON 2-2-4 MG
     Route: 048
     Dates: start: 20110725
  14. DIAZEPAM [Suspect]
     Active Substance: DIAZEPAM
     Dosage: DOSAGE FORM: UNSPECIFIED
     Route: 065
     Dates: start: 20110725
  15. DOMPERIDONE [Suspect]
     Active Substance: DOMPERIDONE
     Indication: Product used for unknown indication
     Dosage: UNK
     Route: 065
     Dates: start: 20100923, end: 20101108
  16. LORAZEPAM [Suspect]
     Active Substance: LORAZEPAM
     Indication: Sedation
     Dosage: 1 MILLIGRAM
     Route: 048
     Dates: start: 20110725
  17. LORAZEPAM [Suspect]
     Active Substance: LORAZEPAM
     Dosage: 4 MILLIGRAM
     Route: 048
     Dates: start: 20110224, end: 20110410
  18. LORAZEPAM [Suspect]
     Active Substance: LORAZEPAM
     Dosage: 4 MILLIGRAM
     Route: 048
     Dates: start: 20110523, end: 20110627
  19. LORAZEPAM [Suspect]
     Active Substance: LORAZEPAM
     Dosage: 1 MILLIGRAM
     Route: 048
     Dates: start: 20110224, end: 20110410
  20. LORAZEPAM [Suspect]
     Active Substance: LORAZEPAM
     Dosage: 4 MILLIGRAM
     Route: 048
     Dates: start: 20110523, end: 20110627
  21. LORAZEPAM [Suspect]
     Active Substance: LORAZEPAM
     Dosage: 4 MILLIGRAM
     Dates: start: 20110202, end: 20110410
  22. MIRTAZAPINE [Suspect]
     Active Substance: MIRTAZAPINE
     Indication: Depression
     Dosage: 30 MILLIGRAM
     Route: 065
     Dates: start: 20110224, end: 20110506
  23. MIRTAZAPINE [Suspect]
     Active Substance: MIRTAZAPINE
     Indication: Psychotic disorder
     Dosage: UNK (30MG IN THE DAY AND 15MG AT NIGHT)
     Route: 065
  24. MIRTAZAPINE [Suspect]
     Active Substance: MIRTAZAPINE
     Dosage: 30 MILLIGRAM
     Route: 065
     Dates: start: 20100923, end: 20101108
  25. MIRTAZAPINE [Suspect]
     Active Substance: MIRTAZAPINE
     Dosage: 30 MG IN THE DAY AND 15 MG AT NIGHT
     Route: 048
     Dates: start: 20101007, end: 20101012
  26. PAROXETINE [Suspect]
     Active Substance: PAROXETINE
     Indication: Post-traumatic stress disorder
     Dosage: UNK
     Route: 048
     Dates: start: 1996
  27. PAROXETINE [Suspect]
     Active Substance: PAROXETINE
     Indication: Depression
     Dosage: 40 MG, UNK
     Route: 048
     Dates: start: 19990801, end: 20110706
  28. PAROXETINE [Suspect]
     Active Substance: PAROXETINE
     Dosage: 40 MG, QD
     Route: 048
     Dates: start: 201105, end: 20110706
  29. PAROXETINE [Suspect]
     Active Substance: PAROXETINE
     Dosage: 60 MG, QD (20 MG THREE TIMES A DAY)
     Route: 048
     Dates: start: 1997, end: 201105
  30. PAROXETINE [Suspect]
     Active Substance: PAROXETINE
     Dosage: 20 MG THREE TIMES A DAY (PHARMACEUTICAL DOSAGE FORM: TABLET)
     Route: 048
     Dates: start: 19990801, end: 201105
  31. PHOSPHORUS [Suspect]
     Active Substance: PHOSPHORUS
     Indication: Product used for unknown indication
     Dosage: UNK
     Route: 065
  32. PROCYCLIDINE [Suspect]
     Active Substance: PROCYCLIDINE
     Indication: Oculogyric crisis
     Dosage: 5 MG, TID
     Route: 048
     Dates: start: 20110503, end: 20110510
  33. PROCYCLIDINE [Suspect]
     Active Substance: PROCYCLIDINE
     Indication: Extrapyramidal disorder
     Dosage: UNK
     Route: 048
     Dates: start: 1995, end: 1996
  34. PROCYCLIDINE [Suspect]
     Active Substance: PROCYCLIDINE
     Dosage: 20 MG, QD, IN 1ST TRIMESTER
     Route: 065
     Dates: start: 20110415
  35. PROCYCLIDINE [Suspect]
     Active Substance: PROCYCLIDINE
     Dosage: 20 MILLIGRAM, QD
     Route: 048
     Dates: start: 20110324, end: 20110506
  36. PROCYCLIDINE [Suspect]
     Active Substance: PROCYCLIDINE
     Dosage: 5 MILLIGRAM, QD
     Route: 048
     Dates: start: 1995, end: 1995
  37. QUETIAPINE [Suspect]
     Active Substance: QUETIAPINE
     Indication: Psychotic disorder
     Dosage: 300 MG, UNK
     Route: 048
     Dates: start: 20110224, end: 20110506
  38. QUETIAPINE [Suspect]
     Active Substance: QUETIAPINE
     Indication: Stress
     Dosage: UNK
     Route: 048
     Dates: start: 19990801, end: 20110706
  39. PAROXETINE HYDROCHLORIDE [Suspect]
     Active Substance: PAROXETINE HYDROCHLORIDE
     Indication: Depression
     Dosage: 40 MG, QD
     Route: 048
     Dates: start: 201105, end: 20110706
  40. PAROXETINE HYDROCHLORIDE [Suspect]
     Active Substance: PAROXETINE HYDROCHLORIDE
     Indication: Product used for unknown indication
     Dosage: 20 MG, TID
     Route: 048
     Dates: start: 19990801, end: 201105
  41. PAROXETINE HYDROCHLORIDE [Suspect]
     Active Substance: PAROXETINE HYDROCHLORIDE
     Dosage: DRUG WITHDRAWN
     Route: 048
     Dates: start: 1999, end: 201105
  42. PAROXETINE HYDROCHLORIDE [Suspect]
     Active Substance: PAROXETINE HYDROCHLORIDE
     Dosage: 20 MILLIGRAM, TID
     Route: 048
     Dates: start: 1997
  43. PAROXETINE HYDROCHLORIDE [Suspect]
     Active Substance: PAROXETINE HYDROCHLORIDE
     Dosage: UNK
     Route: 048
     Dates: start: 201012
  44. PAROXETINE HYDROCHLORIDE [Suspect]
     Active Substance: PAROXETINE HYDROCHLORIDE
     Route: 048
     Dates: start: 201012
  45. TRAMADOL [Suspect]
     Active Substance: TRAMADOL
     Indication: Oculogyric crisis
     Dosage: 8 MILLIGRAM
     Route: 048
  46. TRAMADOL [Suspect]
     Active Substance: TRAMADOL
     Indication: Muscle spasms
     Dosage: 50-100MG
     Route: 048
     Dates: start: 20080722
  47. TRAMADOL [Suspect]
     Active Substance: TRAMADOL
     Indication: Neck pain
     Dosage: 5 MILLIGRAM
     Route: 044
     Dates: start: 1995, end: 1996
  48. TRAMADOL [Suspect]
     Active Substance: TRAMADOL
     Indication: Serotonin syndrome
     Dosage: DISCONTINUED AFTER 4 OR 5 DAYS
     Route: 048
     Dates: start: 20081201, end: 20101210
  49. TRAMADOL [Suspect]
     Active Substance: TRAMADOL
     Indication: Back pain
  50. TRAMADOL [Suspect]
     Active Substance: TRAMADOL
     Indication: Analgesic therapy

REACTIONS (90)
  - Serotonin syndrome [Not Recovered/Not Resolved]
  - Neuroleptic malignant syndrome [Unknown]
  - Schizophrenia [Unknown]
  - Suicidal ideation [Not Recovered/Not Resolved]
  - Speech disorder [Not Recovered/Not Resolved]
  - Pallor [Unknown]
  - Paralysis [Unknown]
  - Musculoskeletal stiffness [Unknown]
  - Hypoaesthesia oral [Unknown]
  - Drug withdrawal syndrome [Unknown]
  - Hallucinations, mixed [Unknown]
  - Contusion [Not Recovered/Not Resolved]
  - Delirium [Unknown]
  - Dissociation [Not Recovered/Not Resolved]
  - Dyspnoea [Unknown]
  - Disorientation [Not Recovered/Not Resolved]
  - Disturbance in attention [Unknown]
  - Swelling face [Unknown]
  - Incontinence [Not Recovered/Not Resolved]
  - Sensory loss [Unknown]
  - Mania [Unknown]
  - Mood swings [Unknown]
  - Muscle disorder [Unknown]
  - Hypoaesthesia [Not Recovered/Not Resolved]
  - Paraesthesia [Unknown]
  - Psychotic disorder [Recovered/Resolved]
  - Skin discolouration [Not Recovered/Not Resolved]
  - Aphasia [Not Recovered/Not Resolved]
  - H1N1 influenza [Unknown]
  - Visual impairment [Unknown]
  - Gait disturbance [Unknown]
  - Confusional state [Not Recovered/Not Resolved]
  - Depersonalisation/derealisation disorder [Not Recovered/Not Resolved]
  - Cyanosis [Unknown]
  - Tinnitus [Unknown]
  - Tachycardia [Unknown]
  - Premature labour [Unknown]
  - Exposure during pregnancy [Unknown]
  - Drug interaction [Unknown]
  - Dizziness [Unknown]
  - Urinary retention [Unknown]
  - Muscle rigidity [Unknown]
  - Dyskinesia [Unknown]
  - Depression [Unknown]
  - Cogwheel rigidity [Unknown]
  - Agitation [Unknown]
  - Anxiety [Unknown]
  - Seizure [Unknown]
  - Tremor [Not Recovered/Not Resolved]
  - Toxicity to various agents [Unknown]
  - Asthenia [Unknown]
  - Headache [Unknown]
  - Diarrhoea [Unknown]
  - Dystonia [Unknown]
  - Feeling of body temperature change [Unknown]
  - Swollen tongue [Unknown]
  - Muscle spasms [Not Recovered/Not Resolved]
  - Decreased appetite [Unknown]
  - Blood sodium decreased [Unknown]
  - Vision blurred [Unknown]
  - Drooling [Unknown]
  - Emotional disorder [Unknown]
  - Feeling of despair [Unknown]
  - Derealisation [Not Recovered/Not Resolved]
  - Pyrexia [Unknown]
  - Gastric pH decreased [Unknown]
  - Heart rate increased [Unknown]
  - Feeling jittery [Unknown]
  - Arthralgia [Unknown]
  - Menstrual disorder [Unknown]
  - Nightmare [Unknown]
  - Eye pain [Unknown]
  - Mydriasis [Unknown]
  - Illness [Unknown]
  - Sleep disorder [Unknown]
  - Parosmia [Unknown]
  - Hyperhidrosis [Unknown]
  - Balance disorder [Unknown]
  - Vomiting [Unknown]
  - Fatigue [Not Recovered/Not Resolved]
  - Pruritus [Unknown]
  - Restlessness [Unknown]
  - Limb injury [Unknown]
  - Restless legs syndrome [Not Recovered/Not Resolved]
  - Somnolence [Not Recovered/Not Resolved]
  - Therapeutic product ineffective [Unknown]
  - Eye pain [Unknown]
  - Dizziness [Unknown]
  - Premature labour [Unknown]
  - Contusion [Unknown]

NARRATIVE: CASE EVENT DATE: 20100101
